FAERS Safety Report 17197700 (Version 6)
Quarter: 2020Q3

REPORT INFORMATION
  Report Type: Spontaneous
  Country: US (occurrence: US)
  Receive Date: 20191224
  Receipt Date: 20200723
  Transmission Date: 20201102
  Serious: Yes (Hospitalization)
  Sender: FDA-Public Use
  Company Number: US-CELGENEUS-USA-20191207206

PATIENT
  Age: 38 Year
  Sex: Female
  Weight: 66 kg

DRUGS (8)
  1. HYDROCODONE [Concomitant]
     Active Substance: HYDROCODONE
     Indication: PRODUCT USED FOR UNKNOWN INDICATION
     Route: 065
     Dates: start: 20191023
  2. GEMCITABINE. [Suspect]
     Active Substance: GEMCITABINE
     Dosage: 1790 MILLIGRAM
     Route: 041
     Dates: start: 20191029
  3. NORCO [Concomitant]
     Active Substance: ACETAMINOPHEN\HYDROCODONE BITARTRATE
     Indication: PRODUCT USED FOR UNKNOWN INDICATION
     Route: 065
  4. GEMCITABINE. [Suspect]
     Active Substance: GEMCITABINE
     Indication: PANCREATIC CARCINOMA
     Dosage: 1790 MILLIGRAM
     Route: 041
     Dates: start: 20190926
  5. GEMCITABINE. [Suspect]
     Active Substance: GEMCITABINE
     Dosage: 1790 MILLIGRAM
     Route: 041
     Dates: start: 20191203
  6. ABRAXANE [Suspect]
     Active Substance: PACLITAXEL
     Dosage: 225 MILLIGRAM
     Route: 041
     Dates: start: 20191203
  7. ABRAXANE [Suspect]
     Active Substance: PACLITAXEL
     Indication: PANCREATIC CARCINOMA
     Dosage: 225 MILLIGRAM
     Route: 041
     Dates: start: 20190926
  8. ABRAXANE [Suspect]
     Active Substance: PACLITAXEL
     Dosage: 225 MILLIGRAM
     Route: 041
     Dates: start: 20191029

REACTIONS (6)
  - Nausea [Recovered/Resolved]
  - Vomiting [Recovered/Resolved]
  - Oropharyngeal pain [Recovered/Resolved]
  - Pancytopenia [Recovered/Resolved]
  - Dehydration [Recovered/Resolved]
  - Sepsis [Recovered/Resolved]

NARRATIVE: CASE EVENT DATE: 201911
